FAERS Safety Report 9361055 (Version 1)
Quarter: 2013Q2

REPORT INFORMATION
  Report Type: Spontaneous
  Country: DE (occurrence: DE)
  Receive Date: 20130621
  Receipt Date: 20130621
  Transmission Date: 20140414
  Serious: Yes (Other)
  Sender: FDA-Public Use
  Company Number: DE-UCBSA-089519

PATIENT
  Age: 23 Year
  Sex: Female
  Weight: 91 kg

DRUGS (4)
  1. EQUASYM [Suspect]
     Indication: DEPRESSION
     Route: 048
     Dates: start: 20071203, end: 20080122
  2. DIPIPERON [Suspect]
     Indication: PSYCHOTIC DISORDER
     Dosage: DAILY DOSE : 40 MG
     Route: 048
     Dates: start: 20071203, end: 20080122
  3. FLUOXETIN [Suspect]
     Indication: DEPRESSION
     Route: 048
     Dates: start: 20071203, end: 20080122
  4. FOLIO FORTE [Concomitant]

REACTIONS (4)
  - Premature delivery [Unknown]
  - Pre-eclampsia [Recovered/Resolved]
  - Thrombocytopenia [Unknown]
  - Pregnancy [Recovered/Resolved]
